FAERS Safety Report 9140323 (Version 1)
Quarter: 2013Q1

REPORT INFORMATION
  Report Type: Spontaneous
  Country: US (occurrence: US)
  Receive Date: 20130305
  Receipt Date: 20130305
  Transmission Date: 20140127
  Serious: No
  Sender: FDA-Public Use
  Company Number: US-009507513-1303USA001300

PATIENT
  Sex: Male

DRUGS (1)
  1. DULERA [Suspect]
     Dosage: 100/5MCG 1STANDARD DOSE OF 13, 2 PUFFS, INHALATION
     Route: 045
     Dates: start: 201212

REACTIONS (3)
  - Lung disorder [Not Recovered/Not Resolved]
  - Underdose [Unknown]
  - Product quality issue [Unknown]
